FAERS Safety Report 6449462-9 (Version None)
Quarter: 2009Q4

REPORT INFORMATION
  Report Type: 
  Country: None (occurrence: None)
  Receive Date: 20091120
  Receipt Date: 20091109
  Transmission Date: 20100525
  Serious: Yes (Disabling)
  Sender: FDA-Public Use
  Company Number: PHHY2009DE45733

PATIENT
  Sex: Male
  Weight: 92 kg

DRUGS (9)
  1. RASILEZ [Suspect]
     Indication: HYPERTENSION
     Dosage: 300 MG, UNK
     Route: 048
     Dates: start: 20081014
  2. ISOSORBIDE DINITRATE [Suspect]
     Indication: CORONARY ARTERY DISEASE
     Dosage: 40 MG, UNK
     Route: 048
     Dates: start: 20080510, end: 20091021
  3. NEBIVOLOL [Concomitant]
     Indication: HYPERTENSION
     Dosage: 5 MG, UNK
     Route: 048
     Dates: start: 20080510
  4. ASPIRIN [Concomitant]
     Indication: ARTERIOSCLEROSIS
     Dosage: 100 MG, UNK
     Route: 048
     Dates: start: 20080510
  5. INSULIN [Concomitant]
  6. ORAL ANTIDIABETICS [Concomitant]
  7. METFORMIN HCL [Concomitant]
     Indication: DIABETES MELLITUS
     Dosage: 500 MG/DAY
     Dates: start: 20080910
  8. LANTUS [Concomitant]
     Indication: DIABETES MELLITUS
     Dosage: 100 IU/ML, UNK
     Dates: start: 20071002
  9. ZOLOFT [Concomitant]
     Dosage: 50 MG/DAY
     Dates: start: 20081020

REACTIONS (7)
  - BONE PAIN [None]
  - DIZZINESS [None]
  - HYPERTENSION [None]
  - LUMBAR SPINAL STENOSIS [None]
  - NEUROPATHY PERIPHERAL [None]
  - PAIN IN EXTREMITY [None]
  - RETINOPATHY [None]
